FAERS Safety Report 4473603-6 (Version None)
Quarter: 2004Q4

REPORT INFORMATION
  Report Type: 
  Country: None (occurrence: None)
  Receive Date: 20040909
  Receipt Date: 20040701
  Transmission Date: 20050328
  Serious: Yes (Other)
  Sender: FDA-Public Use
  Company Number: F03200400077

PATIENT
  Age: 54 Year
  Sex: Female

DRUGS (10)
  1. ELOXATIN [Suspect]
     Indication: COLORECTAL CANCER
     Dosage: 187 MG 1/1 CYCLE; FREQUENCY EVERY 14 DAYS - INTRAVENOUS NOS
     Route: 042
     Dates: start: 20040623, end: 20040623
  2. FOLINIC ACID - LEUCOVORIN - SOLUTION [Suspect]
     Indication: COLORECTAL CANCER
     Dosage: 440 MG 2/1 CYCLE - INTRAVENOUS NOS
     Route: 042
     Dates: start: 20040623, end: 20040623
  3. FLUOROURACIL [Suspect]
     Indication: COLORECTAL CANCER
     Dosage: 880 MG 2/1 CYCLE - INTRAVENOUS NOS
     Route: 042
     Dates: start: 20040612, end: 20040612
  4. DEXAMETHASONE [Concomitant]
  5. METOPROLOL SUCCINATE [Concomitant]
  6. VALSARTAN [Concomitant]
  7. PIOGLITAZONE HCL [Concomitant]
  8. GLIMEPIRIDE [Concomitant]
  9. WARFARIN SODIUIM [Concomitant]
  10. LANSOPRAZOLE [Concomitant]

REACTIONS (5)
  - CHEST DISCOMFORT [None]
  - DYSPNOEA [None]
  - HYPERHIDROSIS [None]
  - HYPERSENSITIVITY [None]
  - VOMITING [None]
